FAERS Safety Report 17825618 (Version 1)
Quarter: 2020Q2

REPORT INFORMATION
  Report Type: Spontaneous
  Country: US (occurrence: US)
  Receive Date: 20200526
  Receipt Date: 20200526
  Transmission Date: 20200714
  Serious: Yes (Other)
  Sender: FDA-Public Use
  Company Number: US-JNJFOC-20200522318

PATIENT
  Age: 48 Year
  Sex: Female
  Weight: 77.18 kg

DRUGS (6)
  1. NEUTROGENA HEALTHY SKIN RADIANT TINTED MOISTURIZER SUNSCRN BROAD SPF 30, IVORY10 [Suspect]
     Active Substance: HOMOSALATE\OCTINOXATE\OCTISALATE\OXYBENZONE\TITANIUM DIOXIDE
     Indication: PRODUCT USED FOR UNKNOWN INDICATION
     Dosage: A DIME SIZE AMOUNT TWICE DAILY.
     Route: 061
  2. NEUTROGENA HEALTHY SKIN RADIANT CREAM CONCEALER IVORY LIGHT [Suspect]
     Active Substance: COSMETICS
     Indication: PRODUCT USED FOR UNKNOWN INDICATION
     Route: 061
  3. NEUTROGENA RAPID WRINKLE REPAIR SERUM [Suspect]
     Active Substance: COSMETICS
     Indication: PRODUCT USED FOR UNKNOWN INDICATION
     Route: 061
  4. NEUTROGENA RAPID WRINKLE REPAIR REGENERATING CREAM [Suspect]
     Active Substance: COSMETICS
     Indication: SKIN WRINKLING
     Dosage: A DIME SIZE AMOUNT TWICE DAILY.
     Route: 061
  5. NEUTROGENA HYDRO BOOST GEL-CREAM EXTRA-DRY SKIN [Suspect]
     Active Substance: COSMETICS
     Indication: PRODUCT USED FOR UNKNOWN INDICATION
     Route: 061
  6. NEUTROGENA PORE REFINING  CLEANSER [Suspect]
     Active Substance: COSMETICS
     Indication: PRODUCT USED FOR UNKNOWN INDICATION
     Route: 061

REACTIONS (1)
  - Hypersensitivity [Not Recovered/Not Resolved]

NARRATIVE: CASE EVENT DATE: 20200513
